FAERS Safety Report 24666006 (Version 1)
Quarter: 2024Q4

REPORT INFORMATION
  Report Type: Spontaneous
  Country: US (occurrence: US)
  Receive Date: 20241126
  Receipt Date: 20241126
  Transmission Date: 20250114
  Serious: No
  Sender: Harrow Health
  Company Number: US-IMP-2024001031

PATIENT
  Age: 73 Year
  Sex: Female

DRUGS (1)
  1. VEVYE [Suspect]
     Active Substance: CYCLOSPORINE
     Indication: Product used for unknown indication
     Route: 047
     Dates: start: 20241114, end: 20241114

REACTIONS (2)
  - Eye pain [Unknown]
  - Eye swelling [Unknown]

NARRATIVE: CASE EVENT DATE: 20241115
